FAERS Safety Report 15242314 (Version 1)
Quarter: 2018Q3

REPORT INFORMATION
  Report Type: Spontaneous
  Country: US (occurrence: US)
  Receive Date: 20180806
  Receipt Date: 20180806
  Transmission Date: 20181010
  Serious: No
  Sender: FDA-Public Use
  Company Number: US-TEVA-2018-US-939069

PATIENT
  Age: 63 Year
  Sex: Female

DRUGS (1)
  1. FEXOFENADINE [Suspect]
     Active Substance: FEXOFENADINE\FEXOFENADINE HYDROCHLORIDE
     Route: 065
     Dates: start: 201807

REACTIONS (4)
  - Drug ineffective [Unknown]
  - Oral pruritus [Unknown]
  - Nasal pruritus [Unknown]
  - Sneezing [Unknown]
